FAERS Safety Report 7584568-2 (Version None)
Quarter: 2011Q2

REPORT INFORMATION
  Report Type: 
  Country: None (occurrence: None)
  Receive Date: 20110630
  Receipt Date: 20110621
  Transmission Date: 20111010
  Serious: Yes (Other)
  Sender: FDA-Public Use
  Company Number: JP-CEPHALON-2009010436

PATIENT
  Sex: Female

DRUGS (4)
  1. ANAFRANIL [Concomitant]
     Indication: CATAPLEXY
     Route: 048
     Dates: start: 20080804, end: 20080814
  2. ANAFRANIL [Concomitant]
     Route: 048
     Dates: start: 20080815, end: 20080828
  3. MODAFINIL [Suspect]
     Indication: NARCOLEPSY
     Route: 048
     Dates: start: 20080804, end: 20081128
  4. ANAFRANIL [Concomitant]
     Route: 048
     Dates: start: 20080829, end: 20081128

REACTIONS (1)
  - TACHYCARDIA [None]
